FAERS Safety Report 7290897-2 (Version None)
Quarter: 2011Q1

REPORT INFORMATION
  Report Type: 
  Country: None (occurrence: None)
  Receive Date: 20110214
  Receipt Date: 20110203
  Transmission Date: 20110831
  Serious: Yes (Other)
  Sender: FDA-Public Use
  Company Number: DE-JNJFOC-20110106433

PATIENT
  Sex: Female

DRUGS (1)
  1. REMICADE [Suspect]
     Indication: SYMPATHETIC OPHTHALMIA
     Route: 042

REACTIONS (1)
  - VISION BLURRED [None]
